FAERS Safety Report 9213908 (Version 1)
Quarter: 2013Q2

REPORT INFORMATION
  Report Type: Spontaneous
  Country: DK (occurrence: IT)
  Receive Date: 20130405
  Receipt Date: 20130405
  Transmission Date: 20140414
  Serious: Yes (Hospitalization)
  Sender: FDA-Public Use
  Company Number: IT-FRI-1000044034

PATIENT
  Age: 17 Year
  Sex: Male

DRUGS (5)
  1. CITALOPRAM [Suspect]
     Indication: ADJUSTMENT DISORDER WITH DEPRESSED MOOD
     Dosage: 8 DF
     Route: 048
     Dates: start: 201209, end: 20130301
  2. CITALOPRAM [Suspect]
     Dosage: 15 ML
     Dates: start: 20130301, end: 20130301
  3. HALDOL [Concomitant]
     Indication: ADJUSTMENT DISORDER WITH DEPRESSED MOOD
     Dosage: 1 DF
     Route: 048
     Dates: start: 201209, end: 20130301
  4. DEPAKIN [Concomitant]
     Indication: ADJUSTMENT DISORDER WITH DEPRESSED MOOD
     Dosage: 1 DF
     Route: 048
     Dates: start: 201209, end: 20130301
  5. XANAX [Concomitant]
     Indication: ADJUSTMENT DISORDER WITH DEPRESSED MOOD
     Dosage: 0.25 MG
     Route: 048
     Dates: start: 201209, end: 20130301

REACTIONS (2)
  - Slow speech [Recovering/Resolving]
  - Overdose [Recovering/Resolving]
